FAERS Safety Report 8826200 (Version 1)
Quarter: 2012Q4

REPORT INFORMATION
  Report Type: 
  Country: ES (occurrence: ES)
  Receive Date: 20121008
  Receipt Date: 20121008
  Transmission Date: 20130627
  Serious: Yes (Hospitalization, Other)
  Sender: FDA-Public Use
  Company Number: ES-ELI_LILLY_AND_COMPANY-ES201209007750

PATIENT
  Age: 23 Year
  Sex: Male

DRUGS (8)
  1. ZYPREXA [Suspect]
     Indication: SCHIZOPHRENIA
     Dosage: 10 mg, qd
     Route: 048
     Dates: start: 20110211, end: 20111209
  2. ZYPREXA [Suspect]
     Dosage: 80 mg, unknown
     Route: 048
     Dates: start: 20111210, end: 20111210
  3. ABILIFY [Concomitant]
     Indication: SCHIZOPHRENIA
     Dosage: 10 mg, unknown
     Route: 048
  4. ABILIFY [Concomitant]
     Dosage: 15 mg, bid
     Route: 048
  5. ABILIFY [Concomitant]
     Dosage: 150 mg, unknown
     Route: 048
  6. TRANXILIUM [Concomitant]
     Indication: SCHIZOPHRENIA
     Dosage: 5 mg, tid
     Route: 048
  7. TRANXILIUM [Concomitant]
     Dosage: 10 mg, unknown
     Route: 048
  8. TRANXILIUM [Concomitant]
     Dosage: 350 mg, unknown
     Route: 048

REACTIONS (5)
  - Hypercreatininaemia [Recovered/Resolved]
  - Suicide attempt [Unknown]
  - Rhabdomyolysis [Recovered/Resolved]
  - Depressed level of consciousness [Recovered/Resolved]
  - Intentional overdose [Unknown]
